FAERS Safety Report 7145329-1 (Version None)
Quarter: 2010Q4

REPORT INFORMATION
  Report Type: 
  Country: None (occurrence: None)
  Receive Date: 20101208
  Receipt Date: 20101201
  Transmission Date: 20110411
  Serious: Yes (Other)
  Sender: FDA-Public Use
  Company Number: HU-ABBOTT-10P-076-0647062-00

PATIENT
  Sex: Female
  Weight: 75 kg

DRUGS (3)
  1. HUMIRA [Suspect]
     Indication: ANKYLOSING SPONDYLITIS
     Route: 058
     Dates: start: 20090623, end: 20090910
  2. HUMIRA [Suspect]
     Route: 058
     Dates: start: 20100901, end: 20101001
  3. HUMIRA [Suspect]
     Route: 058
     Dates: start: 20101004, end: 20101018

REACTIONS (3)
  - ABORTION SPONTANEOUS [None]
  - INJECTION SITE ERYTHEMA [None]
  - SKIN ULCER [None]
